FAERS Safety Report 8763990 (Version 1)
Quarter: 2012Q4

REPORT INFORMATION
  Report Type: 
  Country: US (occurrence: US)
  Receive Date: 20120907
  Receipt Date: 20120907
  Transmission Date: 20130627
  Serious: Yes (Other)
  Sender: FDA-Public Use
  Company Number: US-PFIZER INC-2012211332

PATIENT
  Age: 79 Year
  Sex: Male

DRUGS (1)
  1. EPIPEN JR [Suspect]
     Dosage: UNK

REACTIONS (3)
  - Accidental exposure to product [Unknown]
  - Tachycardia [Recovered/Resolved]
  - Blood pressure increased [Recovered/Resolved]
